FAERS Safety Report 9885418 (Version 1)
Quarter: 2014Q1

REPORT INFORMATION
  Report Type: Spontaneous
  Country: US (occurrence: US)
  Receive Date: 20140210
  Receipt Date: 20140210
  Transmission Date: 20141002
  Serious: No
  Sender: FDA-Public Use
  Company Number: US-BAYER-2014-015654

PATIENT
  Age: 45 Year
  Sex: Female

DRUGS (1)
  1. CIPRO 5 % ORAL SUSPENSION [Suspect]
     Indication: ESCHERICHIA INFECTION
     Dosage: UNK
     Dates: start: 20140123

REACTIONS (1)
  - Off label use [None]
